FAERS Safety Report 9729227 (Version 3)
Quarter: 2014Q1

REPORT INFORMATION
  Report Type: Report from Study
  Country: US (occurrence: US)
  Receive Date: 20131204
  Receipt Date: 20140307
  Transmission Date: 20141002
  Serious: Yes (Death, Hospitalization, Other)
  Sender: FDA-Public Use
  Company Number: PHEH2013US025096

PATIENT
  Age: 53 Year
  Sex: Female

DRUGS (1)
  1. CLOZARIL [Suspect]

REACTIONS (7)
  - Hypoventilation [Fatal]
  - Aspiration [Fatal]
  - Cardiac arrest [Fatal]
  - Dyspnoea [Unknown]
  - Sleep apnoea syndrome [Unknown]
  - Bronchial secretion retention [Unknown]
  - Choking [Unknown]
